FAERS Safety Report 7498509-X (Version None)
Quarter: 2011Q2

REPORT INFORMATION
  Report Type: 
  Country: None (occurrence: None)
  Receive Date: 20110516
  Receipt Date: 20110506
  Transmission Date: 20111010
  Serious: Yes (Hospitalization)
  Sender: FDA-Public Use
  Company Number: 1000018611

PATIENT
  Age: 80 Year
  Sex: Male

DRUGS (3)
  1. LOVASTATIN [Suspect]
     Indication: HYPERLIPIDAEMIA
     Dosage: 40 MG (40 MG, 1 IN 1 D), ORAL
     Route: 048
  2. ATENOLOL [Concomitant]
  3. DILTIAZEM [Suspect]
     Indication: HYPERTENSION

REACTIONS (13)
  - BRADYARRHYTHMIA [None]
  - NODAL RHYTHM [None]
  - RENAL FAILURE CHRONIC [None]
  - BRADYCARDIA [None]
  - URINARY INCONTINENCE [None]
  - DRUG INTERACTION [None]
  - HYPERKALAEMIA [None]
  - CIRCULATORY COLLAPSE [None]
  - RENAL FAILURE ACUTE [None]
  - RHABDOMYOLYSIS [None]
  - ELECTROCARDIOGRAM T WAVE PEAKED [None]
  - DEPRESSED LEVEL OF CONSCIOUSNESS [None]
  - HEART RATE DECREASED [None]
